FAERS Safety Report 5931863-6 (Version None)
Quarter: 2008Q4

REPORT INFORMATION
  Report Type: 
  Country: None (occurrence: None)
  Receive Date: 20081027
  Receipt Date: 20081022
  Transmission Date: 20090506
  Serious: Yes (Hospitalization, Other)
  Sender: FDA-Public Use
  Company Number: US-AMGEN-US313950

PATIENT
  Sex: Male
  Weight: 94.484 kg

DRUGS (18)
  1. ENBREL [Suspect]
     Indication: RHEUMATOID ARTHRITIS
     Route: 058
     Dates: start: 20021201, end: 20060201
  2. PREDNISONE TAB [Suspect]
     Route: 065
     Dates: start: 19940101, end: 20000101
  3. PREDNISONE TAB [Suspect]
     Route: 048
     Dates: start: 20051201
  4. PLAQUENIL [Suspect]
     Route: 048
     Dates: start: 19940101
  5. ARAVA [Suspect]
     Route: 048
     Dates: start: 20001001
  6. KINERET [Suspect]
     Route: 058
     Dates: start: 20020801, end: 20021101
  7. INFLIXIMAB [Suspect]
     Route: 042
     Dates: start: 20020801, end: 20021001
  8. METHOTREXATE [Suspect]
     Dates: start: 19940101, end: 20001001
  9. RITUXAN [Suspect]
     Route: 042
     Dates: start: 20060301
  10. FELDENE [Concomitant]
     Dates: start: 20051222
  11. NEXIUM [Concomitant]
     Route: 048
     Dates: start: 20051222
  12. PIROXICAM [Concomitant]
     Dates: start: 20050405
  13. ASCORBIC ACID [Concomitant]
     Route: 048
     Dates: start: 20020827
  14. NIASPAN [Concomitant]
     Route: 048
     Dates: start: 20021126
  15. SYNTHROID [Concomitant]
     Route: 048
     Dates: start: 20020827
  16. ASPIRIN [Concomitant]
  17. ASPIRIN [Concomitant]
     Route: 048
  18. COUMADIN [Concomitant]
     Route: 048

REACTIONS (3)
  - ATRIAL SEPTAL DEFECT [None]
  - CEREBRAL ARTERY EMBOLISM [None]
  - RETINAL ARTERY OCCLUSION [None]
